FAERS Safety Report 6440063-5 (Version None)
Quarter: 2009Q4

REPORT INFORMATION
  Report Type: 
  Country: None (occurrence: None)
  Receive Date: 20091113
  Receipt Date: 20091109
  Transmission Date: 20100525
  Serious: No
  Sender: FDA-Public Use
  Company Number: US-ROXANE LABORATORIES, INC.-2009-RO-01158RO

PATIENT
  Sex: Female

DRUGS (1)
  1. FLUTICASONE [Suspect]

REACTIONS (3)
  - NASAL DISCOMFORT [None]
  - PRODUCT FORMULATION ISSUE [None]
  - PRODUCT ODOUR ABNORMAL [None]
